FAERS Safety Report 6414059 (Version 2)
Quarter: 2021Q4

REPORT INFORMATION
  Report Type: Spontaneous
  Country: US (occurrence: US)
  Receive Date: 20070914
  Receipt Date: 20211029
  Transmission Date: 20220303
  Serious: Yes (Other)
  Sender: FDA-Public Use
  Company Number: PFIZER INC-2007074979

PATIENT
  Age: 57 Year
  Sex: Female

DRUGS (2)
  1. SERTRALINE HYDROCHLORIDE [Suspect]
     Active Substance: SERTRALINE HYDROCHLORIDE
     Indication: Anxiety
     Dosage: 25 MG, DAILY
  2. SERTRALINE HYDROCHLORIDE [Suspect]
     Active Substance: SERTRALINE HYDROCHLORIDE
     Indication: Depression
     Dosage: 50 MG, DAILY

REACTIONS (6)
  - Urinary hesitation [Recovered/Resolved]
  - Dysuria [Recovered/Resolved]
  - Dyspareunia [Recovered/Resolved]
  - Dyschezia [Recovered/Resolved]
  - Urinary retention [Recovered/Resolved]
  - Bladder spasm [Recovered/Resolved]
